FAERS Safety Report 15563573 (Version 1)
Quarter: 2018Q4

REPORT INFORMATION
  Report Type: Spontaneous
  Country: US (occurrence: US)
  Receive Date: 20181029
  Receipt Date: 20181029
  Transmission Date: 20190205
  Serious: No
  Sender: FDA-Public Use
  Company Number: US-B.I. PHARMACEUTICALS,INC./RIDGEFIELD-2018-BI-051291

PATIENT
  Age: 54 Year
  Sex: Female

DRUGS (3)
  1. GILOTRIF [Suspect]
     Active Substance: AFATINIB
     Dosage: QOD;  FORM STRENGTH: 40 MG; FORMULATION: TABLET? YES ?ACTION TAKEN DOSE INCREASED
     Route: 048
     Dates: start: 20180823, end: 20181003
  2. GILOTRIF [Suspect]
     Active Substance: AFATINIB
     Indication: LUNG NEOPLASM MALIGNANT
     Route: 048
     Dates: start: 20180803, end: 20180813
  3. GILOTRIF [Suspect]
     Active Substance: AFATINIB
     Dosage: QD;  FORM STRENGTH: 30 MG; FORMULATION: TABLET?  YES ?ACTION TAKEN DOSE NOT CHANGED
     Route: 048
     Dates: start: 20181004

REACTIONS (10)
  - Diarrhoea [Not Recovered/Not Resolved]
  - Dehydration [Not Recovered/Not Resolved]
  - Acne [Not Recovered/Not Resolved]
  - Pruritus [Not Recovered/Not Resolved]
  - Liver function test increased [Recovered/Resolved]
  - Rash macular [Not Recovered/Not Resolved]
  - Skin exfoliation [Not Recovered/Not Resolved]
  - Therapeutic response unexpected [Not Recovered/Not Resolved]
  - Mouth ulceration [Not Recovered/Not Resolved]
  - Haemorrhage [Not Recovered/Not Resolved]

NARRATIVE: CASE EVENT DATE: 2018
